FAERS Safety Report 24054621 (Version 2)
Quarter: 2024Q3

REPORT INFORMATION
  Report Type: Report from Study
  Country: AU (occurrence: AU)
  Receive Date: 20240705
  Receipt Date: 20240721
  Transmission Date: 20241017
  Serious: Yes (Hospitalization, Other)
  Sender: BAXTER
  Company Number: AU-BAXTER-2024BAX020768

PATIENT
  Age: 73 Year
  Sex: Male
  Weight: 86.7 kg

DRUGS (21)
  1. CYCLOPHOSPHAMIDE [Suspect]
     Active Substance: CYCLOPHOSPHAMIDE
     Indication: Diffuse large B-cell lymphoma stage IV
     Dosage: 1100 MG, EVERY 3 WEEKS
     Route: 042
     Dates: start: 20240501, end: 20240530
  2. CYCLOPHOSPHAMIDE [Suspect]
     Active Substance: CYCLOPHOSPHAMIDE
     Dosage: 1100 MG, EVERY 3 WEEKS
     Route: 042
     Dates: start: 20240627
  3. DOXORUBICIN [Suspect]
     Active Substance: DOXORUBICIN
     Indication: Diffuse large B-cell lymphoma stage IV
     Dosage: 74 MG, EVERY 3 WEEKS
     Route: 042
     Dates: start: 20240501, end: 20240530
  4. DOXORUBICIN [Suspect]
     Active Substance: DOXORUBICIN
     Dosage: 74 MG, EVERY 3 WEEKS
     Route: 042
     Dates: start: 20240627
  5. RITUXIMAB [Suspect]
     Active Substance: RITUXIMAB
     Indication: Diffuse large B-cell lymphoma stage IV
     Dosage: 740 MG, EVERY 3 WEEKS
     Route: 042
     Dates: start: 20240501, end: 20240530
  6. RITUXIMAB [Suspect]
     Active Substance: RITUXIMAB
     Dosage: 740 MG, EVERY 3 WEEKS
     Route: 042
     Dates: start: 20240627
  7. EPCORITAMAB [Suspect]
     Active Substance: EPCORITAMAB
     Indication: Diffuse large B-cell lymphoma stage IV
     Dosage: DRUG NOT ADMINISTERED
     Route: 065
  8. VINCRISTINE [Suspect]
     Active Substance: VINCRISTINE
     Indication: Diffuse large B-cell lymphoma stage IV
     Dosage: 2 MG, EVERY 3 WEEKS
     Route: 042
     Dates: start: 20240501, end: 20240530
  9. VINCRISTINE [Suspect]
     Active Substance: VINCRISTINE
     Dosage: 2 MG, EVERY 3 WEEKS
     Route: 042
     Dates: start: 20240627
  10. PREDNISONE [Suspect]
     Active Substance: PREDNISONE
     Indication: Diffuse large B-cell lymphoma stage IV
     Dosage: 100 MG, DAILY C1-6, DAY 1-5, EVERY 1 DAYS
     Route: 048
     Dates: start: 20240501, end: 20240603
  11. PREDNISONE [Suspect]
     Active Substance: PREDNISONE
     Dosage: 100 MG, DAILY C1-6, DAY 1-5, EVERY 1 DAYS
     Route: 048
     Dates: start: 20240627
  12. ALLOPURINOL [Concomitant]
     Active Substance: ALLOPURINOL
     Indication: Prophylaxis
     Dosage: 300 MG, EVERY 1 DAYS
     Route: 065
     Dates: start: 20240420
  13. DOCUSATE SODIUM AND SENNA [Concomitant]
     Active Substance: DOCUSATE SODIUM\SENNOSIDES
     Indication: Constipation prophylaxis
     Dosage: 2 DOSAGE FORM, 2/DAYS
     Route: 065
     Dates: start: 20240412
  14. MIRTAZAPINE [Concomitant]
     Active Substance: MIRTAZAPINE
     Indication: Depression
     Dosage: 15 MG, EVERY 1 DAYS
     Route: 065
     Dates: start: 20240418
  15. PANTOPRAZOLE [Concomitant]
     Active Substance: PANTOPRAZOLE
     Indication: Gastrointestinal disorder prophylaxis
     Dosage: 40 MG, EVERY 1 DAYS
     Route: 065
     Dates: start: 20240419
  16. POTASSIUM CHLORIDE [Concomitant]
     Active Substance: POTASSIUM CHLORIDE
     Indication: Prophylaxis
     Dosage: 1200 MG, 2/DAYS
     Route: 065
     Dates: start: 20240427
  17. GRANULOCYTE COLONY-STIMULATING FACTOR NOS [Concomitant]
     Active Substance: GRANULOCYTE COLONY-STIMULATING FACTOR NOS
     Indication: Neutropenia
     Dosage: 0.3 MG, AS NECESSARY
     Route: 065
     Dates: start: 20240418
  18. FUROSEMIDE [Concomitant]
     Active Substance: FUROSEMIDE
     Indication: Ascites
     Dosage: 80 MG, 2/DAYS
     Route: 065
     Dates: start: 20240519, end: 20240519
  19. VALACYCLOVIR HYDROCHLORIDE [Concomitant]
     Active Substance: VALACYCLOVIR HYDROCHLORIDE
     Indication: Antiviral prophylaxis
     Dosage: 500 MG, EVERY 1 DAYS
     Route: 065
  20. SULFAMETHOXAZOLE\TRIMETHOPRIM [Concomitant]
     Active Substance: SULFAMETHOXAZOLE\TRIMETHOPRIM
     Indication: Antifungal prophylaxis
     Dosage: 160/800 MG, 3/WEEKS
     Route: 065
  21. APIXABAN [Concomitant]
     Active Substance: APIXABAN
     Indication: Thrombosis prophylaxis
     Dosage: 5 MG, 2/DAYS
     Route: 065
     Dates: start: 20240530, end: 20240618

REACTIONS (1)
  - Lower gastrointestinal haemorrhage [Not Recovered/Not Resolved]

NARRATIVE: CASE EVENT DATE: 20240618
